FAERS Safety Report 4709272-7 (Version None)
Quarter: 2005Q3

REPORT INFORMATION
  Report Type: 
  Country: None (occurrence: None)
  Receive Date: 20050708
  Receipt Date: 20050629
  Transmission Date: 20060218
  Serious: Yes (Hospitalization)
  Sender: FDA-Public Use
  Company Number: 2005SE03802

PATIENT
  Age: 24966 Day
  Sex: Female

DRUGS (11)
  1. LIDOCAINE [Suspect]
     Indication: LOCAL ANAESTHESIA
     Route: 058
     Dates: start: 20050529, end: 20050529
  2. ROSUVASTATIN CODE NOT BROKEN [Suspect]
     Indication: CARDIAC FAILURE CHRONIC
     Route: 048
     Dates: start: 20041118
  3. MONOCEDOCARD [Concomitant]
     Indication: ANGINA PECTORIS
     Route: 048
  4. PANTOPRAZOLE SODIUM [Concomitant]
     Indication: STOMACH DISCOMFORT
     Route: 048
  5. OXAZEPAM [Concomitant]
     Indication: RESTLESSNESS
     Route: 048
  6. ACETYLSALICYLZUUR [Concomitant]
     Indication: ANGINA PECTORIS
     Route: 048
  7. SPIRONOLACTONE [Concomitant]
     Indication: CARDIAC FAILURE
     Route: 048
  8. PLAVIX [Concomitant]
     Indication: ANGINA PECTORIS
     Route: 048
  9. COVERSYL [Concomitant]
     Indication: CARDIAC FAILURE
     Route: 048
  10. PAROXETINE HCL [Concomitant]
     Indication: AGORAPHOBIA
     Route: 048
  11. BISOPROLOL [Concomitant]
     Indication: CARDIAC FAILURE
     Route: 048

REACTIONS (3)
  - ANAESTHETIC COMPLICATION [None]
  - CIRCULATORY COLLAPSE [None]
  - DYSPNOEA [None]
